FAERS Safety Report 8198780-5 (Version None)
Quarter: 2012Q1

REPORT INFORMATION
  Report Type: 
  Country: None (occurrence: None)
  Receive Date: 20120309
  Receipt Date: 20120207
  Transmission Date: 20120608
  Serious: No
  Sender: FDA-Public Use
  Company Number: US-AMGEN-USASP2012008142

PATIENT
  Age: 70 Year
  Sex: Female

DRUGS (11)
  1. PROLIA [Suspect]
     Indication: OSTEOPOROSIS POSTMENOPAUSAL
     Dosage: 60 MG, Q6MO
     Route: 058
     Dates: start: 20110901
  2. COLON BALANCE [Concomitant]
     Dosage: 1 IU, QD
     Route: 048
  3. HEART [Concomitant]
     Dosage: UNK
     Route: 065
  4. PREDNISONE TAB [Concomitant]
     Dosage: 5 MG, UNK
     Route: 048
  5. CENTRUM [Concomitant]
     Dosage: UNK
     Route: 048
  6. HYPERTENSIN [Concomitant]
     Dosage: UNK
     Route: 065
  7. CALCIUM [Concomitant]
     Dosage: 1500 MG, QD
     Route: 048
  8. THYROID THERAPY [Concomitant]
     Dosage: UNK
     Route: 065
  9. VITAMIN D [Concomitant]
     Dosage: 25 IU, QD
     Route: 048
  10. MAGNESIUM [Concomitant]
     Dosage: 1 MG, QD
     Route: 048
  11. ATORVASTATIN [Concomitant]
     Dosage: UNK
     Route: 065

REACTIONS (4)
  - INCORRECT ROUTE OF DRUG ADMINISTRATION [None]
  - INJECTION SITE ERYTHEMA [None]
  - INJECTION SITE MASS [None]
  - INJECTION SITE SWELLING [None]
